FAERS Safety Report 20989106 (Version 2)
Quarter: 2023Q2

REPORT INFORMATION
  Report Type: Spontaneous
  Country: US (occurrence: US)
  Receive Date: 20220621
  Receipt Date: 20230410
  Transmission Date: 20230721
  Serious: Yes (Hospitalization, Other)
  Sender: FDA-Public Use
  Company Number: US-Hikma Pharmaceuticals-US-H14001-22-01500

PATIENT
  Age: 58 Year
  Sex: Male

DRUGS (92)
  1. DEXMEDETOMIDINE [Suspect]
     Active Substance: DEXMEDETOMIDINE
     Indication: Delirium
     Dosage: 0.4 MCG/KG/HR TITRATED UP TO 2 MCG/KG/HR
     Route: 041
  2. DEXMEDETOMIDINE [Suspect]
     Active Substance: DEXMEDETOMIDINE
     Dosage: 2 MCG/KG/HR TO 0.4 MCG/KG/HR
     Route: 041
  3. DEXMEDETOMIDINE [Suspect]
     Active Substance: DEXMEDETOMIDINE
     Dosage: 0.5 MCG/KG/HR TO 0.4 MCG/KG/HR; TITRATED UP TO 0.4 MCG/KG/HR OFF BY 0730  (ON DAY-03)
     Route: 041
  4. DEXMEDETOMIDINE [Suspect]
     Active Substance: DEXMEDETOMIDINE
     Dosage: 0.5 MCG/MG, TITRATED UP TO (ON DAY-02)
     Route: 041
  5. KETAMINE [Suspect]
     Active Substance: KETAMINE
     Indication: Delirium
     Route: 042
  6. KETAMINE [Suspect]
     Active Substance: KETAMINE
     Route: 042
  7. KETAMINE [Suspect]
     Active Substance: KETAMINE
     Route: 042
  8. KETAMINE [Suspect]
     Active Substance: KETAMINE
     Route: 042
  9. KETAMINE [Suspect]
     Active Substance: KETAMINE
     Dosage: 0.06 MG/KG/HR TITRATED TO 0.5 MG/KG/HR
     Route: 041
  10. KETAMINE [Suspect]
     Active Substance: KETAMINE
     Route: 041
  11. KETAMINE [Suspect]
     Active Substance: KETAMINE
     Dosage: 0.5 MG/KG/HR TO 0.25 MG/KG/HR; TITRATED UP TO ON DAY-05 (WEANING PERIOD)
     Route: 041
  12. KETAMINE [Suspect]
     Active Substance: KETAMINE
     Dosage: 0.25 MG/KG/HR TO 0.125 MG/KG/HR (ON DAY-06, WEANING PERIOD)
     Route: 041
  13. KETAMINE [Suspect]
     Active Substance: KETAMINE
     Dosage: 0.125 MG/KG/HR TO 0.5 MG/KG/HR (DAY-07, WEANING PERIOD)
     Route: 041
  14. KETAMINE [Suspect]
     Active Substance: KETAMINE
     Route: 041
  15. KETAMINE [Suspect]
     Active Substance: KETAMINE
     Route: 041
  16. QUETIAPINE [Suspect]
     Active Substance: QUETIAPINE
     Indication: Delirium
     Route: 065
  17. QUETIAPINE [Suspect]
     Active Substance: QUETIAPINE
     Route: 065
  18. QUETIAPINE [Suspect]
     Active Substance: QUETIAPINE
     Route: 065
  19. QUETIAPINE [Suspect]
     Active Substance: QUETIAPINE
     Route: 065
  20. QUETIAPINE [Suspect]
     Active Substance: QUETIAPINE
     Route: 065
  21. QUETIAPINE [Suspect]
     Active Substance: QUETIAPINE
     Route: 065
  22. QUETIAPINE [Suspect]
     Active Substance: QUETIAPINE
     Route: 065
  23. QUETIAPINE [Suspect]
     Active Substance: QUETIAPINE
     Route: 065
  24. QUETIAPINE [Suspect]
     Active Substance: QUETIAPINE
     Route: 065
  25. QUETIAPINE [Suspect]
     Active Substance: QUETIAPINE
     Route: 065
  26. QUETIAPINE [Suspect]
     Active Substance: QUETIAPINE
     Route: 065
  27. QUETIAPINE [Suspect]
     Active Substance: QUETIAPINE
     Route: 065
  28. QUETIAPINE [Suspect]
     Active Substance: QUETIAPINE
     Route: 065
  29. QUETIAPINE [Suspect]
     Active Substance: QUETIAPINE
     Route: 065
  30. QUETIAPINE [Suspect]
     Active Substance: QUETIAPINE
     Route: 065
  31. QUETIAPINE [Suspect]
     Active Substance: QUETIAPINE
     Route: 065
  32. QUETIAPINE [Suspect]
     Active Substance: QUETIAPINE
     Route: 065
  33. QUETIAPINE [Suspect]
     Active Substance: QUETIAPINE
     Route: 065
  34. QUETIAPINE [Suspect]
     Active Substance: QUETIAPINE
     Route: 065
  35. QUETIAPINE [Suspect]
     Active Substance: QUETIAPINE
     Route: 065
  36. QUETIAPINE [Suspect]
     Active Substance: QUETIAPINE
     Route: 065
  37. GABAPENTIN [Suspect]
     Active Substance: GABAPENTIN
     Indication: Neuralgia
     Route: 065
  38. GABAPENTIN [Suspect]
     Active Substance: GABAPENTIN
     Route: 065
  39. GABAPENTIN [Suspect]
     Active Substance: GABAPENTIN
     Route: 065
  40. GABAPENTIN [Suspect]
     Active Substance: GABAPENTIN
     Route: 065
  41. GABAPENTIN [Suspect]
     Active Substance: GABAPENTIN
     Route: 065
  42. GABAPENTIN [Suspect]
     Active Substance: GABAPENTIN
     Route: 065
  43. GABAPENTIN [Suspect]
     Active Substance: GABAPENTIN
     Route: 065
  44. GABAPENTIN [Suspect]
     Active Substance: GABAPENTIN
     Route: 065
  45. GABAPENTIN [Suspect]
     Active Substance: GABAPENTIN
     Route: 065
  46. GABAPENTIN [Suspect]
     Active Substance: GABAPENTIN
     Route: 065
  47. GABAPENTIN [Suspect]
     Active Substance: GABAPENTIN
     Route: 065
  48. GABAPENTIN [Suspect]
     Active Substance: GABAPENTIN
     Route: 065
  49. GABAPENTIN [Suspect]
     Active Substance: GABAPENTIN
     Route: 065
  50. VALPROIC ACID [Suspect]
     Active Substance: VALPROIC ACID
     Indication: Delirium
     Route: 042
  51. VALPROIC ACID [Suspect]
     Active Substance: VALPROIC ACID
     Route: 042
  52. VALPROIC ACID [Suspect]
     Active Substance: VALPROIC ACID
     Route: 042
  53. VALPROIC ACID [Suspect]
     Active Substance: VALPROIC ACID
     Route: 042
  54. VALPROIC ACID [Suspect]
     Active Substance: VALPROIC ACID
     Route: 042
  55. VALPROIC ACID [Suspect]
     Active Substance: VALPROIC ACID
     Route: 042
  56. VALPROIC ACID [Suspect]
     Active Substance: VALPROIC ACID
     Route: 042
  57. VALPROIC ACID [Suspect]
     Active Substance: VALPROIC ACID
     Route: 042
  58. VALPROIC ACID [Suspect]
     Active Substance: VALPROIC ACID
     Route: 042
  59. VALPROIC ACID [Suspect]
     Active Substance: VALPROIC ACID
     Route: 042
  60. VALPROIC ACID [Suspect]
     Active Substance: VALPROIC ACID
     Route: 042
  61. VALPROIC ACID [Suspect]
     Active Substance: VALPROIC ACID
     Route: 042
  62. VALPROIC ACID [Suspect]
     Active Substance: VALPROIC ACID
     Route: 042
  63. VALPROIC ACID [Suspect]
     Active Substance: VALPROIC ACID
     Route: 042
  64. HALOPERIDOL [Suspect]
     Active Substance: HALOPERIDOL
     Indication: Delirium
     Route: 065
  65. HALOPERIDOL [Suspect]
     Active Substance: HALOPERIDOL
     Route: 065
  66. HALOPERIDOL [Suspect]
     Active Substance: HALOPERIDOL
     Route: 065
  67. HALOPERIDOL [Suspect]
     Active Substance: HALOPERIDOL
     Route: 065
  68. HALOPERIDOL [Suspect]
     Active Substance: HALOPERIDOL
     Route: 065
  69. HALOPERIDOL [Suspect]
     Active Substance: HALOPERIDOL
     Route: 065
  70. HALOPERIDOL [Suspect]
     Active Substance: HALOPERIDOL
     Route: 065
  71. ALPRAZOLAM [Suspect]
     Active Substance: ALPRAZOLAM
     Indication: Delirium
     Route: 065
  72. ALPRAZOLAM [Suspect]
     Active Substance: ALPRAZOLAM
     Route: 065
  73. LORAZEPAM [Suspect]
     Active Substance: LORAZEPAM
     Indication: Delirium
     Route: 065
  74. LORAZEPAM [Suspect]
     Active Substance: LORAZEPAM
     Route: 065
  75. LORAZEPAM [Suspect]
     Active Substance: LORAZEPAM
     Route: 065
  76. LORAZEPAM [Suspect]
     Active Substance: LORAZEPAM
     Route: 065
  77. LORAZEPAM [Suspect]
     Active Substance: LORAZEPAM
     Route: 065
  78. LORAZEPAM [Suspect]
     Active Substance: LORAZEPAM
     Route: 065
  79. LORAZEPAM [Suspect]
     Active Substance: LORAZEPAM
     Route: 065
  80. LORAZEPAM [Suspect]
     Active Substance: LORAZEPAM
     Route: 065
  81. LORAZEPAM [Suspect]
     Active Substance: LORAZEPAM
     Route: 065
  82. LORAZEPAM [Suspect]
     Active Substance: LORAZEPAM
     Route: 065
  83. MIDAZOLAM [Suspect]
     Active Substance: MIDAZOLAM
     Indication: Delirium
     Route: 065
  84. MIDAZOLAM [Suspect]
     Active Substance: MIDAZOLAM
     Route: 065
  85. MIDAZOLAM [Suspect]
     Active Substance: MIDAZOLAM
     Route: 065
  86. MIDAZOLAM [Suspect]
     Active Substance: MIDAZOLAM
     Route: 065
  87. OLANZAPINE [Suspect]
     Active Substance: OLANZAPINE
     Indication: Delirium
     Dosage: UNKNOWN
     Route: 065
  88. ARIPIPRAZOLE [Suspect]
     Active Substance: ARIPIPRAZOLE
     Indication: Delirium
     Route: 065
  89. ARIPIPRAZOLE [Suspect]
     Active Substance: ARIPIPRAZOLE
     Route: 065
  90. ARIPIPRAZOLE [Suspect]
     Active Substance: ARIPIPRAZOLE
     Route: 065
  91. ZIPRASIDONE [Suspect]
     Active Substance: ZIPRASIDONE
     Indication: Delirium
     Route: 065
  92. ZIPRASIDONE [Suspect]
     Active Substance: ZIPRASIDONE
     Route: 065

REACTIONS (3)
  - Sedation complication [Unknown]
  - Abnormal behaviour [Unknown]
  - Drug ineffective [Unknown]
